FAERS Safety Report 11756807 (Version 3)
Quarter: 2016Q1

REPORT INFORMATION
  Report Type: Spontaneous
  Country: US (occurrence: US)
  Receive Date: 20151120
  Receipt Date: 20160129
  Transmission Date: 20160525
  Serious: No
  Sender: FDA-Public Use
  Company Number: US-009507513-1511USA007644

PATIENT
  Age: 61 Year
  Sex: Female
  Weight: 65.31 kg

DRUGS (4)
  1. TOPROL XL [Concomitant]
     Active Substance: METOPROLOL SUCCINATE
  2. ZETIA [Suspect]
     Active Substance: EZETIMIBE
     Indication: BLOOD CHOLESTEROL ABNORMAL
     Dosage: 10MG/ONCE A DAY
     Route: 048
     Dates: start: 20151109, end: 20151111
  3. ZETIA [Suspect]
     Active Substance: EZETIMIBE
     Dosage: 10MG/ONCE A DAY
     Route: 048
     Dates: start: 201511
  4. MONOPRIL [Concomitant]
     Active Substance: FOSINOPRIL SODIUM

REACTIONS (4)
  - Abdominal pain [Recovered/Resolved]
  - Abnormal faeces [Recovered/Resolved]
  - Faeces discoloured [Recovered/Resolved]
  - Abdominal distension [Recovered/Resolved]

NARRATIVE: CASE EVENT DATE: 2015
